FAERS Safety Report 23513293 (Version 1)
Quarter: 2024Q1

REPORT INFORMATION
  Report Type: Spontaneous
  Country: IN (occurrence: IN)
  Receive Date: 20240212
  Receipt Date: 20240212
  Transmission Date: 20240409
  Serious: Yes (Other)
  Sender: FDA-Public Use
  Company Number: IN-MYLANLABS-2024M1013191

PATIENT
  Age: 68 Year
  Sex: Male

DRUGS (10)
  1. DOCETAXEL [Suspect]
     Active Substance: DOCETAXEL\DOCETAXEL ANHYDROUS
     Indication: Prostate cancer metastatic
     Dosage: UNK
     Route: 065
  2. DOCETAXEL [Suspect]
     Active Substance: DOCETAXEL\DOCETAXEL ANHYDROUS
     Indication: Hormone-refractory prostate cancer
  3. CABAZITAXEL [Suspect]
     Active Substance: CABAZITAXEL
     Indication: Prostate cancer metastatic
     Dosage: UNK
     Route: 065
  4. CABAZITAXEL [Suspect]
     Active Substance: CABAZITAXEL
     Indication: Hormone-refractory prostate cancer
  5. ENZALUTAMIDE [Suspect]
     Active Substance: ENZALUTAMIDE
     Indication: Prostate cancer metastatic
     Dosage: UNK
     Route: 065
  6. ENZALUTAMIDE [Suspect]
     Active Substance: ENZALUTAMIDE
     Indication: Hormone-refractory prostate cancer
  7. LUTETIUM LU-177 [Suspect]
     Active Substance: LUTETIUM LU-177
     Indication: Prostate cancer metastatic
     Dosage: UNK
     Route: 065
  8. LUTETIUM LU-177 [Suspect]
     Active Substance: LUTETIUM LU-177
     Indication: Hormone-refractory prostate cancer
  9. VIPIVOTIDE TETRAXETAN ACTINIUM AC-225 [Suspect]
     Active Substance: VIPIVOTIDE TETRAXETAN ACTINIUM AC-225
     Indication: Prostate cancer metastatic
     Dosage: 100 KBQ/KG BODY WEIGHT
     Route: 065
  10. VIPIVOTIDE TETRAXETAN ACTINIUM AC-225 [Suspect]
     Active Substance: VIPIVOTIDE TETRAXETAN ACTINIUM AC-225
     Indication: Hormone-refractory prostate cancer

REACTIONS (2)
  - Drug ineffective [Unknown]
  - Disease progression [Unknown]
